FAERS Safety Report 10382154 (Version 1)
Quarter: 2014Q3

REPORT INFORMATION
  Report Type: Spontaneous
  Country: RS (occurrence: RS)
  Receive Date: 20140813
  Receipt Date: 20140813
  Transmission Date: 20150326
  Serious: Yes (Hospitalization)
  Sender: FDA-Public Use
  Company Number: RS-BANPHARM-20142925

PATIENT
  Age: 9 Year
  Sex: Female

DRUGS (1)
  1. IBUPROFEN UNKNOWN PRODUCT [Suspect]
     Active Substance: IBUPROFEN
     Route: 048

REACTIONS (4)
  - Epstein-Barr virus infection [None]
  - Cytomegalovirus infection [None]
  - Drug-disease interaction [None]
  - Stevens-Johnson syndrome [Recovered/Resolved]
